FAERS Safety Report 22619206 (Version 2)
Quarter: 2023Q2

REPORT INFORMATION
  Report Type: Spontaneous
  Country: US (occurrence: US)
  Receive Date: 20230620
  Receipt Date: 20230623
  Transmission Date: 20230722
  Serious: Yes (Hospitalization)
  Sender: FDA-Public Use
  Company Number: US-MYLANLABS-2023M1063689

PATIENT
  Sex: Female
  Weight: 96.16 kg

DRUGS (1)
  1. ATORVASTATIN [Suspect]
     Active Substance: ATORVASTATIN
     Indication: Product used for unknown indication
     Dosage: 10 MILLIGRAM, QD
     Route: 065
     Dates: start: 2020

REACTIONS (3)
  - Sepsis [Recovered/Resolved]
  - Escherichia infection [Recovered/Resolved]
  - Acute kidney injury [Recovered/Resolved]
